FAERS Safety Report 7311614-3 (Version None)
Quarter: 2011Q1

REPORT INFORMATION
  Report Type: 
  Country: None (occurrence: None)
  Receive Date: 20110224
  Receipt Date: 20110221
  Transmission Date: 20110831
  Serious: Yes (Hospitalization)
  Sender: FDA-Public Use
  Company Number: SE-ABBOTT-11P-150-0700822-00

PATIENT
  Sex: Female
  Weight: 74 kg

DRUGS (7)
  1. HUMIRA [Suspect]
  2. PURINETHOL [Concomitant]
     Indication: PRODUCT USED FOR UNKNOWN INDICATION
  3. HUMIRA [Suspect]
  4. REMICADE [Suspect]
     Indication: COLITIS ULCERATIVE
     Dates: start: 20110113
  5. HUMIRA [Suspect]
     Indication: COLITIS ULCERATIVE
     Dates: start: 20110114
  6. COLAZID [Concomitant]
     Indication: PRODUCT USED FOR UNKNOWN INDICATION
  7. ALLOPURINOL [Concomitant]
     Indication: PRODUCT USED FOR UNKNOWN INDICATION

REACTIONS (7)
  - ORAL PAIN [None]
  - ORAL FUNGAL INFECTION [None]
  - ABDOMINAL PAIN [None]
  - OROPHARYNGEAL PAIN [None]
  - TRISMUS [None]
  - FATIGUE [None]
  - PAIN IN JAW [None]
